FAERS Safety Report 7000473-4 (Version None)
Quarter: 2010Q3

REPORT INFORMATION
  Report Type: 
  Country: None (occurrence: None)
  Receive Date: 20100920
  Receipt Date: 20100909
  Transmission Date: 20110219
  Serious: Yes (Hospitalization)
  Sender: FDA-Public Use
  Company Number: CA-JNJFOC-20100902219

PATIENT
  Sex: Male
  Weight: 92 kg

DRUGS (9)
  1. REMICADE [Suspect]
     Indication: CROHN'S DISEASE
     Route: 042
  2. REMICADE [Suspect]
     Route: 042
  3. SEROQUEL [Concomitant]
     Route: 048
  4. DESYREL [Concomitant]
     Route: 048
  5. PURINETHOL [Concomitant]
     Route: 048
  6. EFFEXOR [Concomitant]
     Route: 048
  7. FLURAZEPAM [Concomitant]
     Route: 048
  8. FLOMAX [Concomitant]
     Route: 048
  9. SODIUM CARBONATE [Concomitant]
     Route: 048

REACTIONS (1)
  - NEPHROLITHIASIS [None]
